FAERS Safety Report 18505271 (Version 1)
Quarter: 2020Q4

REPORT INFORMATION
  Report Type: Spontaneous
  Country: US (occurrence: US)
  Receive Date: 20201116
  Receipt Date: 20201116
  Transmission Date: 20210114
  Serious: No
  Sender: FDA-Public Use
  Company Number: US-DRREDDYS-USA/USA/20/0128582

PATIENT
  Age: 71 Year
  Sex: Male

DRUGS (3)
  1. ASPIRIN 81MG [Concomitant]
     Active Substance: ASPIRIN
     Indication: PRODUCT USED FOR UNKNOWN INDICATION
  2. OMEPRAZOLE. [Suspect]
     Active Substance: OMEPRAZOLE
     Indication: FREQUENT BOWEL MOVEMENTS
     Dates: start: 20200714, end: 20200724
  3. PYRIDOSTIGMINE 90MG [Concomitant]
     Indication: PRODUCT USED FOR UNKNOWN INDICATION

REACTIONS (3)
  - Product use in unapproved indication [Recovering/Resolving]
  - Frequent bowel movements [Recovering/Resolving]
  - Condition aggravated [Recovering/Resolving]
